FAERS Safety Report 5657522-5 (Version None)
Quarter: 2008Q1

REPORT INFORMATION
  Report Type: 
  Country: None (occurrence: None)
  Receive Date: 20080307
  Receipt Date: 20080307
  Transmission Date: 20080703
  Serious: Yes (Hospitalization)
  Sender: FDA-Public Use
  Company Number: None

PATIENT
  Sex: Male
  Weight: 79 kg

DRUGS (2)
  1. THALIDOMIDE [Suspect]
     Indication: PROSTATE CANCER
     Dosage: 100MG ONCE A DAY PO
     Route: 048
     Dates: start: 20080218, end: 20080305
  2. DOXIL [Concomitant]

REACTIONS (4)
  - BILE DUCT OBSTRUCTION [None]
  - DISEASE PROGRESSION [None]
  - INTERNATIONAL NORMALISED RATIO INCREASED [None]
  - JAUNDICE [None]
